FAERS Safety Report 6500430-8 (Version None)
Quarter: 2009Q4

REPORT INFORMATION
  Report Type: 
  Country: None (occurrence: None)
  Receive Date: 20091216
  Receipt Date: 20091211
  Transmission Date: 20100525
  Serious: Yes (Death, Life-Threatening, Other)
  Sender: FDA-Public Use
  Company Number: PHEH2009US17511

PATIENT
  Sex: Male

DRUGS (1)
  1. EXJADE [Suspect]
     Dosage: 1750 MG DAILY
     Dates: start: 20090929, end: 20091120

REACTIONS (3)
  - BRAIN HYPOXIA [None]
  - CARDIAC ARREST [None]
  - CIRCULATORY COLLAPSE [None]
